FAERS Safety Report 7465066-3 (Version None)
Quarter: 2011Q2

REPORT INFORMATION
  Report Type: 
  Country: None (occurrence: None)
  Receive Date: 20110509
  Receipt Date: 20110428
  Transmission Date: 20111010
  Serious: Yes (Hospitalization, Other)
  Sender: FDA-Public Use
  Company Number: US-JNJFOC-20110500815

PATIENT
  Age: 6 Decade
  Sex: Male
  Weight: 136.08 kg

DRUGS (5)
  1. FENTANYL [Suspect]
     Route: 062
  2. OXYCODONE [Concomitant]
     Indication: BACK PAIN
     Route: 048
  3. ACTOS [Suspect]
     Indication: DIABETES MELLITUS
     Route: 065
  4. PERCOCET [Concomitant]
     Indication: BACK PAIN
     Route: 048
  5. FENTANYL [Suspect]
     Indication: BACK PAIN
     Route: 062

REACTIONS (4)
  - CELLULITIS [None]
  - BREAKTHROUGH PAIN [None]
  - WEIGHT DECREASED [None]
  - DRUG INEFFECTIVE [None]
